FAERS Safety Report 4356024-6 (Version None)
Quarter: 2004Q2

REPORT INFORMATION
  Report Type: 
  Country: None (occurrence: None)
  Receive Date: 20040511
  Receipt Date: 20040426
  Transmission Date: 20050107
  Serious: Yes (Hospitalization)
  Sender: FDA-Public Use
  Company Number: DE-ROCHE-365463

PATIENT
  Age: 65 Year
  Sex: Female

DRUGS (34)
  1. MYCOPHENOLATE MOFETIL [Suspect]
     Route: 065
     Dates: start: 20040415, end: 20040420
  2. MYCOPHENOLATE MOFETIL [Suspect]
     Dosage: LOWERED IN REPONSE TO ISCHAEMIC COLITIS.
     Route: 065
     Dates: start: 20040421, end: 20040503
  3. MYCOPHENOLATE MOFETIL [Suspect]
     Route: 065
     Dates: start: 20040504
  4. CYCLOSPORINE [Suspect]
     Dosage: ADJUSTED TO REACH PREDEFINED TARGET LEVELS.
     Route: 065
     Dates: start: 20040415, end: 20040416
  5. CYCLOSPORINE [Suspect]
     Route: 065
     Dates: start: 20040417, end: 20040418
  6. CYCLOSPORINE [Suspect]
     Route: 065
     Dates: start: 20040419, end: 20040420
  7. CYCLOSPORINE [Suspect]
     Route: 065
     Dates: start: 20040421, end: 20040422
  8. CYCLOSPORINE [Suspect]
     Route: 065
     Dates: start: 20040423, end: 20040425
  9. CYCLOSPORINE [Suspect]
     Route: 065
     Dates: start: 20040426, end: 20040502
  10. CYCLOSPORINE [Suspect]
     Route: 065
     Dates: start: 20040503, end: 20040504
  11. CYCLOSPORINE [Suspect]
     Route: 065
     Dates: start: 20040505
  12. PREDNISOLONE [Suspect]
     Dosage: TAPER ACCORDING TO LOCAL PROTOCOL.
     Route: 065
     Dates: start: 20040415, end: 20040415
  13. PREDNISOLONE [Suspect]
     Route: 065
     Dates: start: 20040416, end: 20040416
  14. PREDNISOLONE [Suspect]
     Route: 065
     Dates: start: 20040417, end: 20040418
  15. PREDNISOLONE [Suspect]
     Route: 065
     Dates: start: 20040419, end: 20040419
  16. PREDNISOLONE [Suspect]
     Route: 065
     Dates: start: 20040420, end: 20040420
  17. PREDNISOLONE [Suspect]
     Route: 065
     Dates: start: 20040421, end: 20040421
  18. PREDNISOLONE [Suspect]
     Route: 065
     Dates: start: 20040422, end: 20040422
  19. PREDNISOLONE [Suspect]
     Route: 065
     Dates: start: 20040423, end: 20040423
  20. PREDNISOLONE [Suspect]
     Route: 065
     Dates: start: 20040424, end: 20040424
  21. PREDNISOLONE [Suspect]
     Route: 065
     Dates: start: 20040425, end: 20040425
  22. PREDNISOLONE [Suspect]
     Route: 065
     Dates: start: 20040426, end: 20040426
  23. PREDNISOLONE [Suspect]
     Route: 065
     Dates: start: 20040427, end: 20040427
  24. PREDNISOLONE [Suspect]
     Route: 065
     Dates: start: 20040428, end: 20040428
  25. PREDNISOLONE [Suspect]
     Route: 065
     Dates: start: 20040429, end: 20040429
  26. PREDNISOLONE [Suspect]
     Route: 065
     Dates: start: 20040430, end: 20040430
  27. PREDNISOLONE [Suspect]
     Route: 065
     Dates: start: 20040501, end: 20040501
  28. PREDNISOLONE [Suspect]
     Route: 065
     Dates: start: 20040502, end: 20040504
  29. PREDNISOLONE [Suspect]
     Route: 065
     Dates: start: 20040505
  30. METOPROLOL [Concomitant]
     Dosage: ANTI-HYPERTENSIVE.
     Dates: end: 20040415
  31. FUROSEMIDE [Concomitant]
     Dosage: ANTI-HYPERTENSIVE.
  32. EPOETIN ALFA [Concomitant]
     Dosage: ANTI-ANAEMIC.
     Dates: end: 20040415
  33. CEFOTIAM HYDROCHLORIDE [Concomitant]
     Dosage: ANTI-BACTERIAL.
     Dates: start: 20040415, end: 20040418
  34. FELODIPIN [Concomitant]
     Dosage: ANTI-HYPERTENSIVE.
     Dates: start: 20040422

REACTIONS (9)
  - ACUTE ABDOMEN [None]
  - BACTERIAL INFECTION [None]
  - C-REACTIVE PROTEIN INCREASED [None]
  - COLITIS ISCHAEMIC [None]
  - GENERAL PHYSICAL CONDITION ABNORMAL [None]
  - PARALYSIS [None]
  - PERITONITIS [None]
  - PNEUMOPERITONEUM [None]
  - POST PROCEDURAL COMPLICATION [None]
